FAERS Safety Report 7860823-3 (Version None)
Quarter: 2011Q4

REPORT INFORMATION
  Report Type: 
  Country: None (occurrence: None)
  Receive Date: 20111027
  Receipt Date: 20111012
  Transmission Date: 20120403
  Serious: Yes (Hospitalization)
  Sender: FDA-Public Use
  Company Number: US-BAYER-2011-050346

PATIENT
  Sex: Female
  Weight: 127.44 kg

DRUGS (10)
  1. MOTRIN [Concomitant]
  2. MULTI-VITAMINS [Concomitant]
  3. ASCORBIC ACID [Concomitant]
     Dosage: 250 MG, UNK
  4. ALEVE [Concomitant]
  5. ANTIBIOTICS [Concomitant]
  6. APHOGIE [Concomitant]
  7. YAZ [Suspect]
     Indication: ACNE
     Dosage: UNK
     Dates: start: 20060101, end: 20090101
  8. BIOTIN [Concomitant]
     Dosage: 1000 UNK, UNK
  9. IRON [Concomitant]
     Dosage: 27 MG, UNK
  10. CHROMIUM PICOLINATE [Concomitant]
     Dosage: 400 MG, UNK

REACTIONS (4)
  - CHOLELITHIASIS [None]
  - CHOLECYSTITIS CHRONIC [None]
  - INJURY [None]
  - PAIN [None]
